FAERS Safety Report 6363064-4 (Version None)
Quarter: 2009Q3

REPORT INFORMATION
  Report Type: 
  Country: None (occurrence: None)
  Receive Date: 20090919
  Receipt Date: 20090616
  Transmission Date: 20100115
  Serious: No
  Sender: FDA-Public Use
  Company Number: US-ABBOTT-09P-163-0580172-00

PATIENT
  Sex: Female
  Weight: 68.1 kg

DRUGS (20)
  1. HUMIRA [Suspect]
     Indication: POLYARTHRITIS
     Route: 058
     Dates: start: 20090211
  2. HUMIRA [Suspect]
     Indication: DRUG USE FOR UNKNOWN INDICATION
  3. RAMIPRIL [Concomitant]
     Indication: BLOOD PRESSURE
  4. TOPROL-XL [Concomitant]
     Indication: BLOOD PRESSURE
  5. NORVASC [Concomitant]
     Indication: BLOOD PRESSURE
  6. CRESTOR [Concomitant]
     Indication: BLOOD CHOLESTEROL
  7. PREDNISONE [Concomitant]
     Indication: DRUG USE FOR UNKNOWN INDICATION
  8. DEXEDRINE [Concomitant]
     Indication: DRUG USE FOR UNKNOWN INDICATION
     Dosage: BID PRN
     Route: 048
  9. PROVIDGIL [Concomitant]
     Indication: DRUG USE FOR UNKNOWN INDICATION
  10. MELOXICAM [Concomitant]
     Indication: DRUG USE FOR UNKNOWN INDICATION
  11. ENABLEX [Concomitant]
     Indication: DRUG USE FOR UNKNOWN INDICATION
  12. SOMA [Concomitant]
     Indication: DRUG USE FOR UNKNOWN INDICATION
  13. CYMBALTA [Concomitant]
     Indication: DEPRESSION
  14. RESTORIL [Concomitant]
     Indication: DRUG USE FOR UNKNOWN INDICATION
  15. NOVOLOG [Concomitant]
     Indication: DRUG USE FOR UNKNOWN INDICATION
  16. FORTEO [Concomitant]
     Indication: DRUG USE FOR UNKNOWN INDICATION
  17. VOLTAREN [Concomitant]
     Indication: DRUG USE FOR UNKNOWN INDICATION
     Dosage: GEL
  18. LIDODERM [Concomitant]
     Indication: DRUG USE FOR UNKNOWN INDICATION
  19. NORCO [Concomitant]
     Indication: DRUG USE FOR UNKNOWN INDICATION
  20. FUROCET [Concomitant]
     Indication: DRUG USE FOR UNKNOWN INDICATION

REACTIONS (5)
  - INJECTION SITE ERYTHEMA [None]
  - INJECTION SITE HAEMATOMA [None]
  - INJECTION SITE NODULE [None]
  - INJECTION SITE PRURITUS [None]
  - INJECTION SITE WARMTH [None]
